FAERS Safety Report 23354339 (Version 5)
Quarter: 2025Q1

REPORT INFORMATION
  Report Type: Spontaneous
  Country: US (occurrence: US)
  Receive Date: 20240101
  Receipt Date: 20250116
  Transmission Date: 20250409
  Serious: Yes (Other)
  Sender: SANOFI AVENTIS
  Company Number: US-SA-SAC20231229001051

PATIENT
  Age: 65 Year
  Sex: Male
  Weight: 68.9 kg

DRUGS (34)
  1. DUPIXENT [Suspect]
     Active Substance: DUPILUMAB
     Indication: Asthma
     Dosage: 300 MG, QOW
     Route: 058
  2. DUPIXENT [Suspect]
     Active Substance: DUPILUMAB
     Indication: Arthritis
  3. DUPIXENT [Suspect]
     Active Substance: DUPILUMAB
     Indication: Neoplasm malignant
  4. DUPIXENT [Suspect]
     Active Substance: DUPILUMAB
     Indication: Migraine
  5. DUPIXENT [Suspect]
     Active Substance: DUPILUMAB
     Indication: Diverticulitis
  6. DUPIXENT [Suspect]
     Active Substance: DUPILUMAB
     Indication: Medial tibial stress syndrome
  7. TRIAMCINOLONE ACETONIDE [Concomitant]
     Active Substance: TRIAMCINOLONE ACETONIDE
  8. VENTOLIN HFA [Concomitant]
     Active Substance: ALBUTEROL SULFATE
  9. NIFEDIPINE [Concomitant]
     Active Substance: NIFEDIPINE
  10. NAPROXEN [Concomitant]
     Active Substance: NAPROXEN
  11. NADOLOL [Concomitant]
     Active Substance: NADOLOL
  12. LORATADINE [Concomitant]
     Active Substance: LORATADINE
  13. HYOSCYAMINE SULFATE [Concomitant]
     Active Substance: HYOSCYAMINE SULFATE
  14. DOXYCYCLINE HYCLATE [Concomitant]
     Active Substance: DOXYCYCLINE HYCLATE
  15. DICYCLOMINE HYDROCHLORIDE [Concomitant]
     Active Substance: DICYCLOMINE HYDROCHLORIDE
  16. CLOBETASOL PROPIONATE [Concomitant]
     Active Substance: CLOBETASOL PROPIONATE
  17. CALCIPOTRIENE [Concomitant]
     Active Substance: CALCIPOTRIENE
  18. BANOPHEN [Concomitant]
     Active Substance: DIPHENHYDRAMINE HYDROCHLORIDE
  19. ARMODAFINIL [Concomitant]
     Active Substance: ARMODAFINIL
  20. ALFUZOSIN HYDROCHLORIDE [Concomitant]
     Active Substance: ALFUZOSIN HYDROCHLORIDE
  21. AJOVY [Concomitant]
     Active Substance: FREMANEZUMAB-VFRM
  22. ACETAMINOPHEN [Concomitant]
     Active Substance: ACETAMINOPHEN
  23. OPZELURA [Concomitant]
     Active Substance: RUXOLITINIB PHOSPHATE
  24. ROSUVASTATIN CALCIUM [Concomitant]
     Active Substance: ROSUVASTATIN CALCIUM
  25. ITRACONAZOLE [Concomitant]
     Active Substance: ITRACONAZOLE
  26. DULOXETINE HYDROCHLORIDE [Concomitant]
     Active Substance: DULOXETINE HYDROCHLORIDE
  27. CHOLESTYRAMINE [Concomitant]
     Active Substance: CHOLESTYRAMINE
  28. METHOCARBAMOL [Concomitant]
     Active Substance: METHOCARBAMOL
  29. IBUPROFEN [Concomitant]
     Active Substance: IBUPROFEN
  30. LANSOPRAZOLE [Concomitant]
     Active Substance: LANSOPRAZOLE
  31. CHLORTHALIDONE [Concomitant]
     Active Substance: CHLORTHALIDONE
  32. TIZANIDINE [Concomitant]
     Active Substance: TIZANIDINE
  33. ALFUZOSIN [Concomitant]
     Active Substance: ALFUZOSIN
  34. OMEPRAZOLE [Concomitant]
     Active Substance: OMEPRAZOLE

REACTIONS (11)
  - Diverticulitis [Unknown]
  - Medial tibial stress syndrome [Unknown]
  - Umbilical hernia [Not Recovered/Not Resolved]
  - Injection site haemorrhage [Unknown]
  - Injection site swelling [Unknown]
  - Lack of injection site rotation [Unknown]
  - Injection site vesicles [Unknown]
  - Inappropriate schedule of product administration [Unknown]
  - Product use in unapproved indication [Unknown]
  - Accidental exposure to product [Unknown]
  - Exposure via skin contact [Unknown]

NARRATIVE: CASE EVENT DATE: 20231118
